FAERS Safety Report 6970089-4 (Version None)
Quarter: 2010Q3

REPORT INFORMATION
  Report Type: 
  Country: None (occurrence: None)
  Receive Date: 20100903
  Receipt Date: 20100818
  Transmission Date: 20110219
  Serious: Yes (Hospitalization)
  Sender: FDA-Public Use
  Company Number: 1000015887

PATIENT
  Age: 73 Year
  Sex: Female

DRUGS (10)
  1. ESCITALOPRAM [Suspect]
     Dosage: ORAL
     Route: 048
     Dates: end: 20100807
  2. PREVISCAN (20 MILLIGRAM) [Suspect]
     Dosage: ORAL
     Route: 048
     Dates: start: 20100519, end: 20100807
  3. VALSARTAN  AND HYDROCHLOROTHIAZIDE [Suspect]
     Dosage: ORAL
     Route: 048
     Dates: start: 20100401, end: 20100807
  4. PARIET [Suspect]
     Dosage: ORAL
     Route: 048
     Dates: end: 20100807
  5. MOTILIUM [Suspect]
     Dosage: ORAL
     Route: 048
     Dates: end: 20100807
  6. GAVISCON [Suspect]
     Dosage: ORAL
     Route: 048
     Dates: end: 20100807
  7. TAHOR [Concomitant]
  8. AMLODIPINE [Concomitant]
  9. TEMERIT [Concomitant]
  10. ACETAMINOPHEN W/ PROPOXYPHENE HCL [Concomitant]

REACTIONS (9)
  - ALANINE AMINOTRANSFERASE INCREASED [None]
  - ASPARTATE AMINOTRANSFERASE INCREASED [None]
  - BLOOD ALKALINE PHOSPHATASE INCREASED [None]
  - BLOOD BILIRUBIN INCREASED [None]
  - BLOOD LACTATE DEHYDROGENASE INCREASED [None]
  - DRUG RASH WITH EOSINOPHILIA AND SYSTEMIC SYMPTOMS [None]
  - LYMPHOCYTE COUNT INCREASED [None]
  - NEUTROPHIL COUNT INCREASED [None]
  - RENAL FAILURE ACUTE [None]
